FAERS Safety Report 6437848-8 (Version None)
Quarter: 2009Q4

REPORT INFORMATION
  Report Type: 
  Country: None (occurrence: None)
  Receive Date: 20091112
  Receipt Date: 20081017
  Transmission Date: 20100525
  Serious: No
  Sender: FDA-Public Use
  Company Number: US-ASTRAZENECA-2009UW15766

PATIENT
  Sex: Male

DRUGS (2)
  1. PRILOSEC OTC [Suspect]
     Route: 048
     Dates: start: 20051001
  2. DIURETICS [Concomitant]

REACTIONS (4)
  - DRY MOUTH [None]
  - INCORRECT DRUG ADMINISTRATION DURATION [None]
  - ORAL DISCOMFORT [None]
  - RASH [None]
